FAERS Safety Report 4312414-9 (Version None)
Quarter: 2004Q1

REPORT INFORMATION
  Report Type: 
  Country: None (occurrence: None)
  Receive Date: 20040303
  Receipt Date: 20040224
  Transmission Date: 20041129
  Serious: Yes (Death)
  Sender: FDA-Public Use
  Company Number: US-JNJFOC-20040100275

PATIENT
  Age: 56 Year
  Sex: Male

DRUGS (7)
  1. RISPERDAL [Suspect]
     Indication: ANXIETY
     Dosage: 1 MG, 2 IN 1 DAY, ORAL
     Route: 048
     Dates: start: 20030522, end: 20031215
  2. RISPERDAL [Suspect]
     Indication: DEPRESSION
     Dosage: 1 MG, 2 IN 1 DAY, ORAL
     Route: 048
     Dates: start: 20030522, end: 20031215
  3. RISPERDAL [Suspect]
     Indication: IMPULSE-CONTROL DISORDER
     Dosage: 1 MG, 2 IN 1 DAY, ORAL
     Route: 048
     Dates: start: 20030522, end: 20031215
  4. RISPERDAL [Suspect]
     Indication: MENTAL RETARDATION SEVERITY UNSPECIFIED
     Dosage: 1 MG, 2 IN 1 DAY, ORAL
     Route: 048
     Dates: start: 20030522, end: 20031215
  5. TOPROL-XL [Concomitant]
  6. DEPAKOTE [Concomitant]
  7. ZOLOFT [Concomitant]

REACTIONS (1)
  - CARDIAC DISORDER [None]
